FAERS Safety Report 7106541-0 (Version None)
Quarter: 2010Q4

REPORT INFORMATION
  Report Type: 
  Country: None (occurrence: None)
  Receive Date: 20101116
  Receipt Date: 20101111
  Transmission Date: 20110411
  Serious: Yes (Other)
  Sender: FDA-Public Use
  Company Number: US-PFIZER INC-2010127540

PATIENT
  Sex: Female
  Weight: 113 kg

DRUGS (14)
  1. GEODON [Suspect]
     Indication: BIPOLAR DISORDER
     Dosage: 20 MG, 2X/DAY
     Route: 048
     Dates: start: 20100701
  2. GEODON [Suspect]
     Dosage: 40 MG, 2X/DAY
     Dates: end: 20101006
  3. GEODON [Suspect]
     Dosage: 80 MG, AT BEDTIME
  4. VERAPAMIL - SLOW RELEASE [Concomitant]
     Indication: HYPERTENSION
     Dosage: UNK
  5. PRAVASTATIN [Concomitant]
     Indication: BLOOD CHOLESTEROL INCREASED
     Dosage: UNK
  6. FEXOFENADINE [Concomitant]
  7. AMBIEN [Concomitant]
  8. CYCLOBENZAPRINE [Concomitant]
  9. SUMATRIPTAN [Concomitant]
  10. GABAPENTIN [Concomitant]
  11. BUSPAR [Concomitant]
  12. CYMBALTA [Concomitant]
  13. LEVOTHYROXINE [Concomitant]
  14. OXCARBAZEPINE [Concomitant]

REACTIONS (5)
  - ANXIETY [None]
  - DRUG INEFFECTIVE [None]
  - ELECTROCARDIOGRAM QT SHORTENED [None]
  - NARCOLEPSY [None]
  - STUPOR [None]
